FAERS Safety Report 8792411 (Version 6)
Quarter: 2012Q4

REPORT INFORMATION
  Report Type: 
  Country: US (occurrence: US)
  Receive Date: 20120918
  Receipt Date: 20121120
  Transmission Date: 20130627
  Serious: Yes (Other)
  Sender: FDA-Public Use
  Company Number: US-VERTEX PHARMACEUTICAL INC.-AE-2012-011499

PATIENT
  Age: 57 None
  Sex: Male
  Weight: 118 kg

DRUGS (16)
  1. INCIVEK [Suspect]
     Indication: HEPATITIS C
     Dosage: 750 mg, tid
     Route: 048
     Dates: start: 20120716, end: 20121007
  2. RIBAVIRIN [Suspect]
     Indication: HEPATITIS C
     Dosage: 600 mg, bid
     Route: 048
     Dates: start: 20120716
  3. PEGASYS [Suspect]
     Indication: HEPATITIS C
     Dosage: 100 ?g, qw
     Route: 058
     Dates: start: 20120716
  4. PEGASYS [Suspect]
     Dosage: 130 ?g, qw
     Route: 058
     Dates: start: 20120806
  5. PEGASYS [Suspect]
     Dosage: 180 ?g, UNK
     Route: 058
  6. PEGASYS [Suspect]
     Dosage: 90 ?g, weekly
     Route: 058
     Dates: start: 20120730
  7. LACTULOSE [Concomitant]
     Dosage: 2 DF, qd
     Dates: start: 2009
  8. CIPRO [Concomitant]
     Dosage: 500 mg, qd
  9. ALDACTONE                          /00006201/ [Concomitant]
     Dosage: 1 DF, qd
     Route: 048
  10. CELEXA                             /00582602/ [Concomitant]
     Dosage: 20 mg, UNK
  11. LASIX                              /00032601/ [Concomitant]
     Dosage: 20 mg, qd
     Route: 048
  12. MILK THISTLE EXTRACT [Concomitant]
     Dosage: 140 mg, UNK
  13. MULTIVITAMIN WITH MINERALS [Concomitant]
  14. NADOLOL [Concomitant]
     Dosage: 20 mg, qd
     Route: 048
  15. OMEPRAZOLE [Concomitant]
     Dosage: 40 mg, qd
     Route: 048
  16. PROBIOTIC [Concomitant]
     Dosage: UNK

REACTIONS (16)
  - Platelet count decreased [Not Recovered/Not Resolved]
  - Wound infection staphylococcal [Recovered/Resolved]
  - Limb injury [Not Recovered/Not Resolved]
  - Muscle spasms [Not Recovered/Not Resolved]
  - Neutropenia [Unknown]
  - Insomnia [Recovered/Resolved]
  - Pain in extremity [Not Recovered/Not Resolved]
  - Fatigue [Not Recovered/Not Resolved]
  - Rash [Not Recovered/Not Resolved]
  - Anaemia [Recovered/Resolved]
  - Diarrhoea [Recovered/Resolved]
  - Haemorrhoids [Not Recovered/Not Resolved]
  - Anal pruritus [Recovered/Resolved]
  - Anorectal discomfort [Not Recovered/Not Resolved]
  - Pruritus [Recovered/Resolved]
  - Dysgeusia [Not Recovered/Not Resolved]
